FAERS Safety Report 8515586-5 (Version None)
Quarter: 2012Q3

REPORT INFORMATION
  Report Type: 
  Country: None (occurrence: None)
  Receive Date: 20120717
  Receipt Date: 20120710
  Transmission Date: 20120928
  Serious: Yes (Other)
  Sender: FDA-Public Use
  Company Number: PHHY2012BR060692

PATIENT
  Sex: Female

DRUGS (2)
  1. DIOVAN TRIPLE [Suspect]
     Indication: BLOOD PRESSURE INCREASED
     Dosage: 1 DF (160 MG VALS, 12.5 MG AMLO AND 10 MG HCTZ), DAILY
     Dates: start: 20110917
  2. FORMOTEROL FUMARATE [Suspect]
     Indication: ASTHMA
     Dosage: 2 INHALATIONS A DAY
     Dates: start: 20120302

REACTIONS (8)
  - APHONIA [None]
  - MALAISE [None]
  - POOR QUALITY SLEEP [None]
  - HYPERTENSION [None]
  - DYSPNOEA [None]
  - NASAL DISCOMFORT [None]
  - CEREBROVASCULAR ACCIDENT [None]
  - BRONCHITIS [None]
